FAERS Safety Report 7576684-6 (Version None)
Quarter: 2011Q2

REPORT INFORMATION
  Report Type: 
  Country: None (occurrence: None)
  Receive Date: 20110624
  Receipt Date: 20110624
  Transmission Date: 20111010
  Serious: Yes (Hospitalization)
  Sender: FDA-Public Use
  Company Number: None

PATIENT
  Age: 71 Year
  Sex: Female

DRUGS (2)
  1. ACTONEL [Concomitant]
  2. BONIVA [Suspect]
     Dosage: ONCE PER MONTH BY MOUTH
     Route: 048

REACTIONS (3)
  - FRACTURE [None]
  - GROIN PAIN [None]
  - BACK PAIN [None]
